FAERS Safety Report 8227487-0 (Version None)
Quarter: 2012Q1

REPORT INFORMATION
  Report Type: 
  Country: None (occurrence: None)
  Receive Date: 20120322
  Receipt Date: 20120312
  Transmission Date: 20120608
  Serious: Yes (Hospitalization)
  Sender: FDA-Public Use
  Company Number: PHHY2012JP023182

PATIENT
  Sex: Female
  Weight: 39 kg

DRUGS (6)
  1. EQUA [Concomitant]
     Dosage: 100 MG, UNK
     Route: 048
     Dates: end: 20111217
  2. VALSARTAN, AMLODIPINE [Suspect]
     Indication: HYPERTENSION
     Dosage: 1 DF, DAILY
     Route: 048
     Dates: start: 20110218, end: 20111217
  3. GLIMEPIRIDE OD [Concomitant]
     Dosage: 3 MG, UNK
     Route: 048
     Dates: end: 20111217
  4. DOXAZOSIN MESYLATE [Concomitant]
     Dosage: 2 DF, UNK
     Route: 048
     Dates: end: 20111217
  5. ZETIA [Concomitant]
     Dosage: 10 MG, UNK
     Route: 048
     Dates: end: 20111217
  6. TICLOPIDINE HCL [Concomitant]
     Dosage: 100 MG, UNK
     Route: 048
     Dates: end: 20111217

REACTIONS (2)
  - FEMORAL NECK FRACTURE [None]
  - FALL [None]
